FAERS Safety Report 6656492 (Version 3)
Quarter: 2014Q2

REPORT INFORMATION
  Report Type: Spontaneous
  Country: FR (occurrence: FR)
  Receive Date: 20080520
  Receipt Date: 20140403
  Transmission Date: 20141212
  Serious: Yes (Hospitalization)
  Sender: FDA-Public Use
  Company Number: 2008BI011836

PATIENT
  Age: 48 Year
  Sex: Female

DRUGS (5)
  1. AVONEX [Suspect]
     Indication: RELAPSING-REMITTING MULTIPLE SCLEROSIS
     Route: 030
     Dates: start: 2002, end: 200310
  2. AVONEX [Suspect]
     Indication: RELAPSING-REMITTING MULTIPLE SCLEROSIS
     Route: 030
     Dates: start: 200310
  3. LEVOTHYROX [Concomitant]
     Indication: THYROIDECTOMY
  4. LYSANXIA [Concomitant]
     Indication: ANXIETY
  5. IMOVANE [Concomitant]
     Indication: INSOMNIA

REACTIONS (4)
  - Haematoma [Unknown]
  - Haematochezia [Unknown]
  - Haemoptysis [Recovered/Resolved]
  - Pneumococcal infection [Recovered/Resolved]
